FAERS Safety Report 7138451-7 (Version None)
Quarter: 2010Q4

REPORT INFORMATION
  Report Type: 
  Country: None (occurrence: None)
  Receive Date: 20101201
  Receipt Date: 20101201
  Transmission Date: 20110411
  Serious: Yes (Hospitalization, Other)
  Sender: FDA-Public Use
  Company Number: None

PATIENT
  Sex: Male
  Weight: 50.4 kg

DRUGS (1)
  1. GAMMAGARD [Suspect]
     Indication: BONE MARROW FAILURE
     Dosage: 100 GM DAILY X3 IV DRIP
     Route: 041
     Dates: start: 20100911, end: 20100914

REACTIONS (4)
  - BACK PAIN [None]
  - HEADACHE [None]
  - INFUSION RELATED REACTION [None]
  - NAUSEA [None]
